FAERS Safety Report 23436902 (Version 5)
Quarter: 2024Q4

REPORT INFORMATION
  Report Type: Report from Study
  Country: BE (occurrence: BE)
  Receive Date: 20240124
  Receipt Date: 20241010
  Transmission Date: 20250115
  Serious: No
  Sender: JOHNSON AND JOHNSON
  Company Number: BE-JNJFOC-20240155176

PATIENT
  Age: 68 Year
  Sex: Female
  Weight: 54 kg

DRUGS (3)
  1. SPRAVATO [Suspect]
     Active Substance: ESKETAMINE
     Indication: Depression
     Dosage: 28 MG, 14 TOTAL DOSES?ADDITIONAL THERAPY DATES- 04-JUL-2023, 06-JUL-2023, 14-JUL-2023,18-JUL-2023,20
     Dates: start: 20230627, end: 20230818
  2. SPRAVATO [Suspect]
     Active Substance: ESKETAMINE
     Dosage: 56 MG, 3 TOTAL DOSES?ADDITIONAL THERAPY DATES- 25-AUG-2023
     Dates: start: 20230823, end: 20230829
  3. SPRAVATO [Suspect]
     Active Substance: ESKETAMINE
     Dosage: 28 MG, 15 TOTAL DOSES?ADDITIONAL THERAPY DATES- 05-SEP-2023, 08-SEP-2023, 12-SEP-2023, 15-SEP-2023,
     Dates: start: 20230901, end: 20240109

REACTIONS (1)
  - Dissociation [Recovered/Resolved]

NARRATIVE: CASE EVENT DATE: 20240109
